FAERS Safety Report 7801469-2 (Version None)
Quarter: 2011Q4

REPORT INFORMATION
  Report Type: 
  Country: None (occurrence: None)
  Receive Date: 20111007
  Receipt Date: 20110926
  Transmission Date: 20120403
  Serious: Yes (Hospitalization)
  Sender: FDA-Public Use
  Company Number: US-JNJFOC-20110911225

PATIENT
  Sex: Female
  Weight: 45.36 kg

DRUGS (4)
  1. NAPROXEN [Concomitant]
     Indication: ARTHRITIS
     Route: 048
     Dates: start: 20070101
  2. FOSAMAX [Concomitant]
     Indication: BONE DISORDER
     Dates: start: 20070101
  3. SIMPONI [Suspect]
     Indication: RHEUMATOID ARTHRITIS
     Route: 058
     Dates: start: 20110501
  4. DIOVAN [Concomitant]
     Indication: HYPERTENSION
     Route: 048
     Dates: start: 20060101

REACTIONS (3)
  - DEVICE MALFUNCTION [None]
  - DRUG DOSE OMISSION [None]
  - ANKLE FRACTURE [None]
